FAERS Safety Report 4801430-6 (Version None)
Quarter: 2005Q4

REPORT INFORMATION
  Report Type: 
  Country: None (occurrence: None)
  Receive Date: 20051018
  Receipt Date: 20050829
  Transmission Date: 20060501
  Serious: Yes (Hospitalization)
  Sender: FDA-Public Use
  Company Number: US-BOEHRINGER INGELHEIM PHARMACEUTICALS, INC.-2005-BP-15118BP

PATIENT
  Age: 64 Year
  Sex: Male
  Weight: 83.46 kg

DRUGS (11)
  1. SPIRIVA [Suspect]
     Indication: CHRONIC OBSTRUCTIVE PULMONARY DISEASE
     Route: 055
     Dates: start: 20050706, end: 20050722
  2. LASIX [Concomitant]
  3. COREG [Concomitant]
  4. LISINOPRIL [Concomitant]
  5. LIPITOR [Concomitant]
  6. COUMADIN [Concomitant]
  7. K-DUR 10 [Concomitant]
  8. REMERON [Concomitant]
  9. ADVAIR DISKUS 100/50 [Concomitant]
  10. COMBIVENT MDI [Concomitant]
  11. LORAZEPAM [Concomitant]

REACTIONS (1)
  - DEMENTIA [None]
